FAERS Safety Report 14828419 (Version 1)
Quarter: 2018Q2

REPORT INFORMATION
  Report Type: Spontaneous
  Country: US (occurrence: US)
  Receive Date: 20180430
  Receipt Date: 20180430
  Transmission Date: 20180711
  Serious: Yes (Other)
  Sender: FDA-Public Use
  Company Number: US-SUNOVION-2018SUN001567

PATIENT
  Sex: Female
  Weight: 58.5 kg

DRUGS (2)
  1. APTIOM [Suspect]
     Active Substance: ESLICARBAZEPINE ACETATE
     Indication: SEIZURE
     Dosage: 1600 MG, UNK
     Route: 048
     Dates: start: 201710
  2. TEMAZEPAM. [Concomitant]
     Active Substance: TEMAZEPAM
     Indication: INSOMNIA
     Dosage: 15 MG, HS
     Route: 048

REACTIONS (3)
  - Seizure [Unknown]
  - Anxiety [Unknown]
  - Crying [Unknown]

NARRATIVE: CASE EVENT DATE: 2018
